FAERS Safety Report 24917106 (Version 1)
Quarter: 2025Q1

REPORT INFORMATION
  Report Type: Spontaneous
  Country: US (occurrence: US)
  Receive Date: 20250203
  Receipt Date: 20250203
  Transmission Date: 20250409
  Serious: Yes (Hospitalization, Other)
  Sender: INCYTE
  Company Number: US-INCYTE CORPORATION-2025IN001051

PATIENT

DRUGS (1)
  1. JAKAFI [Suspect]
     Active Substance: RUXOLITINIB
     Indication: Graft versus host disease
     Dosage: 10 MILLIGRAM, BID (1 TABLET IN THE MORNING AND 1 TABLET IN THE EVENING)
     Route: 065
     Dates: start: 202501

REACTIONS (2)
  - Leukaemia [Recovering/Resolving]
  - Thrombosis [Recovering/Resolving]
